FAERS Safety Report 6914990-6 (Version None)
Quarter: 2010Q3

REPORT INFORMATION
  Report Type: 
  Country: None (occurrence: None)
  Receive Date: 20100804
  Receipt Date: 20100722
  Transmission Date: 20110219
  Serious: Yes (Hospitalization)
  Sender: FDA-Public Use
  Company Number: 7012017

PATIENT
  Age: 68 Year
  Sex: Female

DRUGS (2)
  1. REBIF [Suspect]
     Indication: MULTIPLE SCLEROSIS
     Dosage: 44 MCG, 3 IN 1 WK, SUBCUTANEOUS MULTIPLE SCLEROSIS
     Route: 058
     Dates: start: 20040122
  2. HYDROCORTONE [Concomitant]

REACTIONS (5)
  - CEREBROVASCULAR ACCIDENT [None]
  - FALL [None]
  - INJECTION SITE PAIN [None]
  - INSOMNIA [None]
  - MULTIPLE SCLEROSIS [None]
